FAERS Safety Report 14679815 (Version 1)
Quarter: 2018Q1

REPORT INFORMATION
  Report Type: Report from Study
  Country: US (occurrence: US)
  Receive Date: 20180326
  Receipt Date: 20180326
  Transmission Date: 20180509
  Serious: Yes (Death)
  Sender: FDA-Public Use
  Company Number: US-PFIZER INC-2018120348

PATIENT

DRUGS (6)
  1. IFOSFAMIDE. [Concomitant]
     Active Substance: IFOSFAMIDE
     Indication: PENILE CANCER
     Dosage: 1200 MG/M2, CYCLIC (OVER 2 HOURS ON DAYS 1-3, ON A 21-DAY CYCLE)
     Route: 042
  2. BLEOMYCIN SULFATE [Suspect]
     Active Substance: BLEOMYCIN SULFATE
     Indication: PENILE CANCER
     Dosage: UNK, CYCLIC
  3. CISPLATIN. [Concomitant]
     Active Substance: CISPLATIN
     Indication: PENILE CANCER
     Dosage: 25 MG/M2, CYCLIC (OVER 2 HOURS ON DAYS 1-3, ON A 21-DAY CYCLE)
     Route: 042
  4. METHOTREXATE SODIUM. [Suspect]
     Active Substance: METHOTREXATE SODIUM
     Indication: PENILE CANCER
     Dosage: UNK, CYCLIC
  5. CISPLATIN. [Suspect]
     Active Substance: CISPLATIN
     Indication: PENILE CANCER
     Dosage: UNK, CYCLIC
  6. PACLITAXEL. [Concomitant]
     Active Substance: PACLITAXEL
     Indication: PENILE CANCER
     Dosage: 175 MG/M2, CYCLIC (OVER 3 HOURS ON DAY 1, ON A 21 DAY CYCLE)
     Route: 042

REACTIONS (1)
  - Pneumonitis [Fatal]
